FAERS Safety Report 9412895 (Version 1)
Quarter: 2013Q3

REPORT INFORMATION
  Report Type: Spontaneous
  Country: BR (occurrence: BR)
  Receive Date: 20130722
  Receipt Date: 20130722
  Transmission Date: 20140515
  Serious: Yes (Other)
  Sender: FDA-Public Use
  Company Number: BR-SANOFI-AVENTIS-2012SA068457

PATIENT
  Age: 39 Year
  Sex: Female
  Weight: 85 kg

DRUGS (3)
  1. CLEXANE [Suspect]
     Indication: HYPERCOAGULATION
     Dosage: STOP DATE: 2 MONTH AFTER DELIVERY
     Route: 058
     Dates: start: 20120914, end: 2013
  2. METICORTEN [Concomitant]
     Indication: HYPERCOAGULATION
     Route: 048
     Dates: start: 201209
  3. UTROGESTAN [Concomitant]
     Indication: HYPERCOAGULATION
     Dosage: FREQUENCY: AT NIGHT
     Route: 048
     Dates: start: 201209

REACTIONS (3)
  - Foetal placental thrombosis [Unknown]
  - Exposure during pregnancy [Unknown]
  - Premature labour [Unknown]
